FAERS Safety Report 9933519 (Version 2)
Quarter: 2014Q1

REPORT INFORMATION
  Report Type: Spontaneous
  Country: US (occurrence: US)
  Receive Date: 20140228
  Receipt Date: 20140228
  Transmission Date: 20141002
  Serious: No
  Sender: FDA-Public Use
  Company Number: US-MYLANLABS-2013S1022370

PATIENT
  Age: 17 Year
  Sex: Male

DRUGS (4)
  1. CLARAVIS [Suspect]
     Indication: ACNE
     Route: 048
     Dates: start: 20130612, end: 20130712
  2. CLARAVIS [Suspect]
     Indication: ACNE
     Route: 048
     Dates: start: 20130612, end: 20130712
  3. AMNESTEEM CAPSULES [Suspect]
     Indication: ACNE
     Route: 048
     Dates: start: 20130712, end: 201310
  4. AMNESTEEM CAPSULES [Suspect]
     Indication: ACNE
     Route: 048
     Dates: start: 20130712, end: 201310

REACTIONS (1)
  - Depressed mood [Not Recovered/Not Resolved]
